FAERS Safety Report 7100672-7 (Version None)
Quarter: 2010Q4

REPORT INFORMATION
  Report Type: 
  Country: None (occurrence: None)
  Receive Date: 20101113
  Receipt Date: 20100305
  Transmission Date: 20110411
  Serious: No
  Sender: FDA-Public Use
  Company Number: US-ALLERGAN-1001319US

PATIENT
  Age: 73 Year
  Sex: Female
  Weight: 54.422 kg

DRUGS (9)
  1. BOTOX COSMETIC [Suspect]
     Indication: SKIN WRINKLING
     Dosage: 26 UNITS, SINGLE
     Route: 030
     Dates: start: 20100113, end: 20100113
  2. JUVEDERM [Concomitant]
     Indication: SKIN WRINKLING
  3. HYDROCHLOROTHIAZIDE [Concomitant]
  4. LOPID [Concomitant]
  5. ZOCOR [Concomitant]
  6. ZETIA [Concomitant]
  7. MULTI-VITAMINS [Concomitant]
  8. CALCIUM [Concomitant]
  9. ASPIRIN [Concomitant]

REACTIONS (3)
  - EYELID PTOSIS [None]
  - FACIAL PARESIS [None]
  - SKIN TIGHTNESS [None]
